FAERS Safety Report 12840749 (Version 1)
Quarter: 2016Q4

REPORT INFORMATION
  Report Type: Spontaneous
  Country: US (occurrence: US)
  Receive Date: 20161012
  Receipt Date: 20161012
  Transmission Date: 20170207
  Serious: No
  Sender: FDA-Public Use
  Company Number: US-MEDA-2016100001

PATIENT
  Sex: Female

DRUGS (2)
  1. FELBATOL [Suspect]
     Active Substance: FELBAMATE
     Route: 048
  2. FELBAMATE. [Suspect]
     Active Substance: FELBAMATE
     Route: 048

REACTIONS (2)
  - Amnesia [Recovered/Resolved]
  - Memory impairment [Unknown]

NARRATIVE: CASE EVENT DATE: 2014
